FAERS Safety Report 6984116-1 (Version None)
Quarter: 2010Q3

REPORT INFORMATION
  Report Type: 
  Country: None (occurrence: None)
  Receive Date: 20100915
  Receipt Date: 20090610
  Transmission Date: 20110219
  Serious: No
  Sender: FDA-Public Use
  Company Number: US-WYE-H09709009

PATIENT
  Age: 78 Year
  Sex: Female
  Weight: 72.64 kg

DRUGS (2)
  1. ADVIL PM [Suspect]
     Indication: INSOMNIA
     Dosage: 1 CAPLET DAILY
     Route: 048
  2. ADVIL PM [Suspect]
     Dosage: 2 CAPLETS X 1
     Route: 048
     Dates: start: 20090609, end: 20090609

REACTIONS (1)
  - RESTLESS LEGS SYNDROME [None]
